FAERS Safety Report 18395716 (Version 1)
Quarter: 2020Q4

REPORT INFORMATION
  Report Type: Spontaneous
  Country: TR (occurrence: TR)
  Receive Date: 20201018
  Receipt Date: 20201018
  Transmission Date: 20210114
  Serious: Yes (Hospitalization, Other)
  Sender: FDA-Public Use
  Company Number: TR-LUPIN PHARMACEUTICALS INC.-2020-07408

PATIENT
  Age: 57 Year
  Sex: Male

DRUGS (1)
  1. METRONIDAZOLE. [Suspect]
     Active Substance: METRONIDAZOLE
     Indication: DIARRHOEA
     Dosage: 1000 MILLIGRAM, QD (A TOTAL DOSE OF 60 G OVER 2 MONTHS)
     Route: 065

REACTIONS (6)
  - Central nervous system lesion [Recovered/Resolved]
  - Disinhibition [Not Recovered/Not Resolved]
  - Ataxia [Unknown]
  - Speech disorder [Not Recovered/Not Resolved]
  - Deafness unilateral [Unknown]
  - Brain oedema [Recovered/Resolved]
